FAERS Safety Report 4439622-0 (Version None)
Quarter: 2004Q3

REPORT INFORMATION
  Report Type: 
  Country: None (occurrence: None)
  Receive Date: 20040830
  Receipt Date: 20040816
  Transmission Date: 20050211
  Serious: Yes (Other)
  Sender: FDA-Public Use
  Company Number: A03200402035

PATIENT
  Age: 53 Year
  Sex: Male
  Weight: 70.3075 kg

DRUGS (5)
  1. UROAXTRAL - ALFUZOSIN HYDROCHLORIDE - TABLET PR - 10 MG [Suspect]
     Indication: BENIGN PROSTATIC HYPERPLASIA
     Dosage: 10 MG ONCE - ORAL
     Route: 048
     Dates: start: 20040623, end: 20040623
  2. ROFECOXIB [Concomitant]
  3. ATORVASTATIN CALCIUM [Concomitant]
  4. FEXOFENADINE HYDROCHLORIDE [Concomitant]
  5. ACETYLSALICYLIC ACID [Concomitant]

REACTIONS (2)
  - ABDOMINAL DISTENSION [None]
  - ILEUS [None]
